FAERS Safety Report 12906098 (Version 1)
Quarter: 2016Q4

REPORT INFORMATION
  Report Type: Spontaneous
  Country: US (occurrence: US)
  Receive Date: 20161102
  Receipt Date: 20161102
  Transmission Date: 20170207
  Serious: Yes (Other)
  Sender: FDA-Public Use
  Company Number: None

PATIENT
  Age: 91 Year
  Sex: Female
  Weight: 58.97 kg

DRUGS (5)
  1. LISINOPRIL. [Concomitant]
     Active Substance: LISINOPRIL
  2. CITRACAL [Concomitant]
     Active Substance: CALCIUM CITRATE
  3. SIMVASTATIN. [Concomitant]
     Active Substance: SIMVASTATIN
  4. VITAMIN D [Concomitant]
     Active Substance: CHOLECALCIFEROL
  5. JUBLIA [Suspect]
     Active Substance: EFINACONAZOLE
     Indication: ONYCHOMYCOSIS
     Dosage: 8ML ONCE OR TWICE A DAY ON SKIN/NAIL
     Route: 061
     Dates: start: 201506, end: 201605

REACTIONS (3)
  - Pain in extremity [None]
  - Erythema [None]
  - Peripheral swelling [None]

NARRATIVE: CASE EVENT DATE: 2016
